FAERS Safety Report 23159364 (Version 1)
Quarter: 2023Q4

REPORT INFORMATION
  Report Type: Spontaneous
  Country: US (occurrence: None)
  Receive Date: 20231107
  Receipt Date: 20231107
  Transmission Date: 20240109
  Serious: Yes (Disabling, Other)
  Sender: FDA-Public Use
  Company Number: None

PATIENT
  Age: 62 Year
  Sex: Female
  Weight: 60.75 kg

DRUGS (3)
  1. LEVOFLOXACIN [Suspect]
     Active Substance: LEVOFLOXACIN
     Indication: Urinary tract infection
     Dosage: OTHER QUANTITY : 1 TABLET(S);?FREQUENCY : 4 TIMES A DAY;?
     Route: 048
     Dates: start: 20191202, end: 20191204
  2. URSODIOL [Concomitant]
     Active Substance: URSODIOL
  3. CROMOLYN [Concomitant]
     Active Substance: CROMOLYN

REACTIONS (12)
  - Pseudostroke [None]
  - Blindness [None]
  - Insomnia [None]
  - Feeding disorder [None]
  - Gait inability [None]
  - Weight decreased [None]
  - Postural orthostatic tachycardia syndrome [None]
  - Mast cell activation syndrome [None]
  - Primary biliary cholangitis [None]
  - Impaired gastric emptying [None]
  - Ehlers-Danlos syndrome [None]
  - Mitochondrial toxicity [None]

NARRATIVE: CASE EVENT DATE: 20191202
